FAERS Safety Report 9826719 (Version 1)
Quarter: 2013Q4

REPORT INFORMATION
  Report Type: Spontaneous
  Country: US (occurrence: None)
  Receive Date: 20131112
  Receipt Date: 20131112
  Transmission Date: 20140711
  Serious: No
  Sender: FDA-Public Use
  Company Number: US-012505

PATIENT
  Age: 52 Year
  Sex: Female
  Weight: 77.11 kg

DRUGS (1)
  1. PICO-SALAX (NOT SPECIFIED) [Suspect]
     Indication: BOWEL PREPARATION
     Dosage: (1 PACK ONLY)
     Dates: start: 20130729, end: 20130629

REACTIONS (13)
  - Rectal haemorrhage [None]
  - Proctalgia [None]
  - Heart rate irregular [None]
  - Anxiety [None]
  - Insomnia [None]
  - Dizziness [None]
  - Chest discomfort [None]
  - Panic attack [None]
  - Blood pressure increased [None]
  - Headache [None]
  - Vomiting [None]
  - Diarrhoea [None]
  - Abdominal pain upper [None]
